FAERS Safety Report 19097575 (Version 2)
Quarter: 2021Q2

REPORT INFORMATION
  Report Type: Spontaneous
  Country: US (occurrence: US)
  Receive Date: 20210406
  Receipt Date: 20210412
  Transmission Date: 20210717
  Serious: Yes (Other)
  Sender: FDA-Public Use
  Company Number: US-PERRIGO-21US004201

PATIENT
  Sex: Male
  Weight: 65.76 kg

DRUGS (6)
  1. PRILOSEC OTC [Suspect]
     Active Substance: OMEPRAZOLE MAGNESIUM
     Indication: GASTROOESOPHAGEAL REFLUX DISEASE
     Dosage: UNK, UNK
     Route: 048
  2. NEXIUM [Suspect]
     Active Substance: ESOMEPRAZOLE MAGNESIUM
     Indication: GASTROOESOPHAGEAL REFLUX DISEASE
     Dosage: 40 MG, QD
     Route: 048
     Dates: start: 2004, end: 20101214
  3. PREVACID 24 HR [Suspect]
     Active Substance: LANSOPRAZOLE
     Indication: GASTROOESOPHAGEAL REFLUX DISEASE
  4. PREVACID 24 HR [Suspect]
     Active Substance: LANSOPRAZOLE
     Indication: GASTROOESOPHAGEAL REFLUX DISEASE
     Dosage: UNKNOWN, UNKNOWN
     Route: 048
  5. NEXIUM [Suspect]
     Active Substance: ESOMEPRAZOLE MAGNESIUM
     Dosage: 20 MG, QD
     Route: 048
     Dates: start: 20090327, end: 20091020
  6. NEXIUM 24HR [Suspect]
     Active Substance: ESOMEPRAZOLE MAGNESIUM
     Indication: GASTROOESOPHAGEAL REFLUX DISEASE
     Dosage: UNK, UNK
     Route: 048

REACTIONS (8)
  - Vomiting [Unknown]
  - Nausea [Unknown]
  - Abdominal pain upper [Unknown]
  - Gastric cancer [Not Recovered/Not Resolved]
  - Adenocarcinoma gastric [Not Recovered/Not Resolved]
  - Rebound effect [Unknown]
  - Hyperchlorhydria [Unknown]
  - Renal failure [Unknown]

NARRATIVE: CASE EVENT DATE: 2008
